FAERS Safety Report 5235464-7 (Version None)
Quarter: 2007Q1

REPORT INFORMATION
  Report Type: 
  Country: None (occurrence: None)
  Receive Date: 20070212
  Receipt Date: 20070130
  Transmission Date: 20070707
  Serious: Yes (Hospitalization)
  Sender: FDA-Public Use
  Company Number: PHNU2006DE03980

PATIENT
  Age: 80 Year
  Sex: Female

DRUGS (13)
  1. TRILEPTAL [Suspect]
     Indication: EPILEPSY
     Dosage: 600 MG (10 ML) (0-0-10 ML)
     Route: 048
     Dates: start: 20061123, end: 20061123
  2. TRILEPTAL [Suspect]
     Dosage: 750 MG/D (2.5-0-10 ML)
     Route: 048
     Dates: start: 20061124, end: 20061124
  3. TRILEPTAL [Suspect]
     Dosage: 600 MG/D (2.5-0-5 ML)
     Route: 048
     Dates: start: 20061125, end: 20061125
  4. TRILEPTAL [Suspect]
     Dosage: 450 MG/D (2.5-0-5 ML)
     Route: 048
     Dates: start: 20061126, end: 20061126
  5. TRILEPTAL [Suspect]
     Dosage: 430 MG/D (2.5-0-3 ML)
     Route: 048
     Dates: start: 20061127
  6. HYDROCORTISONE [Concomitant]
     Dosage: 1.5 DF (0-1-0.5)
  7. TRILEPTAL [Suspect]
     Dosage: 750 MG/D (0.5-0-2 DF)
     Route: 048
     Dates: start: 20060101
  8. ASTONIN [Concomitant]
     Dosage: 2 DF (1-1-0)
  9. FAMOTIDINE [Concomitant]
     Dosage: 1 DF/D (0-0-1)
  10. AMANTADINE HCL [Concomitant]
     Dosage: 1.5 DF/D (1-0.5-0)
  11. LEVOTHYROXINE SODIUM [Concomitant]
     Dosage: 1 DF/D (1-0-0)
  12. BACLOFEN [Concomitant]
     Dosage: 30 MG/D (10-10-10)
     Dates: end: 20061124
  13. BACLOFEN [Concomitant]
     Dosage: 10 MG, QD
     Dates: start: 20061125, end: 20061126

REACTIONS (3)
  - DEPRESSED LEVEL OF CONSCIOUSNESS [None]
  - DYSPHAGIA [None]
  - SOMNOLENCE [None]
